FAERS Safety Report 20128442 (Version 1)
Quarter: 2021Q4

REPORT INFORMATION
  Report Type: Report from Study
  Country: CA (occurrence: CA)
  Receive Date: 20211130
  Receipt Date: 20211130
  Transmission Date: 20220303
  Serious: Yes (Other)
  Sender: FDA-Public Use
  Company Number: CA-ABBVIE-21K-028-4179047-00

PATIENT
  Sex: Male

DRUGS (1)
  1. HUMIRA [Suspect]
     Active Substance: ADALIMUMAB
     Indication: Crohn^s disease
     Route: 058
     Dates: start: 20160726

REACTIONS (7)
  - Seizure [Unknown]
  - Crohn^s disease [Unknown]
  - Hepatic function abnormal [Unknown]
  - Diarrhoea [Unknown]
  - Constipation [Unknown]
  - Intestinal congestion [Unknown]
  - Hepatic steatosis [Recovered/Resolved]

NARRATIVE: CASE EVENT DATE: 20200101
